FAERS Safety Report 8208077-2 (Version None)
Quarter: 2012Q1

REPORT INFORMATION
  Report Type: 
  Country: None (occurrence: None)
  Receive Date: 20120314
  Receipt Date: 20120305
  Transmission Date: 20120608
  Serious: Yes (Other)
  Sender: FDA-Public Use
  Company Number: PHEH2012US003018

PATIENT
  Sex: Male

DRUGS (6)
  1. ATIVAN [Concomitant]
     Indication: ANXIETY
     Dosage: UNK UKN, UNK
     Route: 048
     Dates: start: 20111101
  2. XANAX [Concomitant]
     Indication: ANXIETY
     Dosage: 0.5 MG, UNK
     Route: 048
     Dates: start: 20080101
  3. LISINOPRIL [Concomitant]
     Indication: HYPERTENSION
     Dosage: 10 MG, UNK
     Dates: start: 20111109
  4. SOM230 [Suspect]
     Indication: ACROMEGALY
     Dosage: UNK
     Route: 030
     Dates: start: 20091022
  5. XANAX [Concomitant]
     Indication: INSOMNIA
  6. ZANTAC [Concomitant]
     Indication: DYSPEPSIA
     Dosage: 150 MG, PRN
     Route: 048
     Dates: start: 20110308, end: 20110922

REACTIONS (9)
  - UNEVALUABLE EVENT [None]
  - MALAISE [None]
  - DIZZINESS [None]
  - CEREBROVASCULAR ACCIDENT [None]
  - SWELLING [None]
  - TREMOR [None]
  - PAIN [None]
  - ANXIETY [None]
  - APPARENT DEATH [None]
